FAERS Safety Report 13486371 (Version 11)
Quarter: 2020Q1

REPORT INFORMATION
  Report Type: Spontaneous
  Country: CA (occurrence: CA)
  Receive Date: 20170426
  Receipt Date: 20200326
  Transmission Date: 20200409
  Serious: Yes (Hospitalization, Other)
  Sender: FDA-Public Use
  Company Number: CA-CELLTRION INC.-2016CA013662

PATIENT

DRUGS (15)
  1. INFLECTRA [Suspect]
     Active Substance: INFLIXIMAB-DYYB
     Dosage: 5 MG/KG (300 MG) EVERY 6 TO 8 WEEKS
     Route: 042
     Dates: start: 20161205, end: 20191216
  2. PLAQUENIL [Concomitant]
     Active Substance: HYDROXYCHLOROQUINE SULFATE
     Dosage: 200 MG, 1X/DAY
     Route: 065
  3. FOLIC ACID. [Concomitant]
     Active Substance: FOLIC ACID
     Dosage: 5 MG, UNK
     Route: 065
  4. INFLECTRA [Suspect]
     Active Substance: INFLIXIMAB-DYYB
     Dosage: 3 MG/KG, EVERY 2, 6 WEEKS, THEN EVERY 8 WEEKS
     Route: 042
     Dates: start: 20160718, end: 20161024
  5. INFLECTRA [Suspect]
     Active Substance: INFLIXIMAB-DYYB
     Dosage: 5 MG/KG, (300 MG) EVERY 6 TO 8 WEEKS
     Route: 042
     Dates: start: 20180427
  6. INFLECTRA [Suspect]
     Active Substance: INFLIXIMAB-DYYB
     Dosage: 5 MG/KG (300 MG) EVERY 6 TO 8 WEEKS
     Route: 042
     Dates: start: 20180920
  7. NAPROXEN                           /00256202/ [Concomitant]
     Active Substance: NAPROXEN SODIUM
     Dosage: 500 MG, 2X/DAY
     Route: 065
  8. PANTOLOC                           /01263204/ [Concomitant]
     Active Substance: PANTOPRAZOLE SODIUM
     Dosage: 20 MG, 1X/DAY
     Route: 065
  9. ACETAMINOPHEN. [Concomitant]
     Active Substance: ACETAMINOPHEN
     Indication: PREMEDICATION
     Dosage: 1000 MG, UNK
     Route: 048
  10. INFLECTRA [Suspect]
     Active Substance: INFLIXIMAB-DYYB
     Dosage: 5 MG/KG (300 MG) EVERY 6 TO 8 WEEKS
     Route: 042
     Dates: start: 20191216, end: 20191216
  11. METHOTREXATE. [Concomitant]
     Active Substance: METHOTREXATE
     Dosage: 20 MG, WEEKLY
     Route: 065
     Dates: start: 2014
  12. INFLECTRA [Suspect]
     Active Substance: INFLIXIMAB-DYYB
     Dosage: 5 MG/KG (300 MG) EVERY 6 TO 8 WEEKS
     Route: 042
     Dates: start: 20190122
  13. INFLECTRA [Suspect]
     Active Substance: INFLIXIMAB-DYYB
     Indication: RHEUMATOID ARTHRITIS
     Dosage: 300 MG, EVERY 6 WEEKS FOR 12 MONTHS
     Route: 042
     Dates: start: 20160718
  14. DIPHENHYDRAMINE. [Concomitant]
     Active Substance: DIPHENHYDRAMINE
     Indication: PREMEDICATION
     Dosage: 50 MG, UNK
     Route: 042
  15. TYLENOL [Concomitant]
     Active Substance: ACETAMINOPHEN
     Dosage: 500 MG, 2 X A DAY
     Route: 065

REACTIONS (13)
  - Eye swelling [Recovered/Resolved]
  - Sensitivity to weather change [Unknown]
  - Drug ineffective [Unknown]
  - Cough [Unknown]
  - Off label use [Unknown]
  - Pain [Unknown]
  - Pruritus [Recovered/Resolved]
  - Mouth swelling [Recovered/Resolved]
  - Body temperature decreased [Unknown]
  - Malaise [Unknown]
  - Flushing [Recovered/Resolved]
  - Pneumothorax [Unknown]
  - Skin infection [Unknown]

NARRATIVE: CASE EVENT DATE: 20161205
